FAERS Safety Report 19707927 (Version 6)
Quarter: 2021Q4

REPORT INFORMATION
  Report Type: Report from Study
  Country: US (occurrence: US)
  Receive Date: 20210817
  Receipt Date: 20211216
  Transmission Date: 20220303
  Serious: Yes (Hospitalization)
  Sender: FDA-Public Use
  Company Number: US-NOVARTISPH-NVSC2021US184758

PATIENT
  Sex: Female

DRUGS (3)
  1. ENTRESTO [Suspect]
     Active Substance: SACUBITRIL\VALSARTAN
     Indication: Product used for unknown indication
     Dosage: 100 MG, BID (49/51 MG)
     Route: 048
     Dates: start: 20210530
  2. ENTRESTO [Suspect]
     Active Substance: SACUBITRIL\VALSARTAN
     Dosage: UNK
     Route: 065
  3. ENTRESTO [Suspect]
     Active Substance: SACUBITRIL\VALSARTAN
     Dosage: 1 DOSAGE FORM (49/51 MG)
     Route: 065

REACTIONS (6)
  - Illness [Unknown]
  - Blood pressure inadequately controlled [Unknown]
  - Memory impairment [Unknown]
  - Abdominal pain upper [Unknown]
  - Cardiac disorder [Unknown]
  - Inappropriate schedule of product administration [Unknown]
